FAERS Safety Report 4945128-2 (Version None)
Quarter: 2006Q1

REPORT INFORMATION
  Report Type: 
  Country: None (occurrence: None)
  Receive Date: 20060117
  Receipt Date: 20050719
  Transmission Date: 20060701
  Serious: Yes (Death)
  Sender: FDA-Public Use
  Company Number: A03200502603

PATIENT
  Age: 65 Year
  Sex: Male

DRUGS (2)
  1. PLAVIX [Suspect]
     Indication: DIAGNOSTIC PROCEDURE
     Dosage: 600 MG PRE-CATH, 75 MG IN THE LAB AND 300 MG AFTER THE CATH - ORAL
     Route: 048
     Dates: start: 20050401
  2. ABCIXIMAB [Concomitant]

REACTIONS (1)
  - THROMBOTIC THROMBOCYTOPENIC PURPURA [None]
